FAERS Safety Report 9647516 (Version 1)
Quarter: 2013Q4

REPORT INFORMATION
  Report Type: Spontaneous
  Country: US (occurrence: US)
  Receive Date: 20131028
  Receipt Date: 20131028
  Transmission Date: 20140711
  Serious: No
  Sender: FDA-Public Use
  Company Number: US-BIOGENIDEC-2008BI002155

PATIENT
  Age: 44 Year
  Sex: Female

DRUGS (2)
  1. AVONEX [Suspect]
     Indication: MULTIPLE SCLEROSIS
     Route: 030
     Dates: start: 19960819, end: 20000120
  2. ELAVIL [Concomitant]
     Indication: FIBROMYALGIA
     Route: 048
     Dates: start: 1991

REACTIONS (1)
  - Anti-interferon antibody positive [Not Recovered/Not Resolved]
